FAERS Safety Report 17445502 (Version 1)
Quarter: 2020Q1

REPORT INFORMATION
  Report Type: Report from Study
  Country: EG (occurrence: EG)
  Receive Date: 20200221
  Receipt Date: 20200221
  Transmission Date: 20200409
  Serious: Yes (Death)
  Sender: FDA-Public Use
  Company Number: NVSC2020EG046710

PATIENT
  Age: 26 Year
  Sex: Male

DRUGS (2)
  1. GLIVEC [Suspect]
     Active Substance: IMATINIB MESYLATE
     Indication: CHRONIC MYELOID LEUKAEMIA
     Dosage: 400 MG, QD
     Route: 065
     Dates: start: 201802, end: 201806
  2. GLIVEC [Suspect]
     Active Substance: IMATINIB MESYLATE
     Indication: CHRONIC MYELOID LEUKAEMIA
     Dosage: 400 MG, QD
     Route: 065
     Dates: start: 201807

REACTIONS (5)
  - Chronic myeloid leukaemia [Fatal]
  - Product dose omission [Fatal]
  - Blood creatinine increased [Fatal]
  - Osteoporosis [Fatal]
  - Mental disorder [Fatal]

NARRATIVE: CASE EVENT DATE: 201805
